FAERS Safety Report 17644299 (Version 1)
Quarter: 2020Q2

REPORT INFORMATION
  Report Type: Spontaneous
  Country: US (occurrence: US)
  Receive Date: 20200408
  Receipt Date: 20200408
  Transmission Date: 20200713
  Serious: No
  Sender: FDA-Public Use
  Company Number: US-PFIZER INC-2020141350

PATIENT
  Age: 64 Year
  Sex: Female
  Weight: 99.79 kg

DRUGS (3)
  1. DOFETILIDE. [Suspect]
     Active Substance: DOFETILIDE
     Indication: ATRIAL FLUTTER
  2. DOFETILIDE. [Suspect]
     Active Substance: DOFETILIDE
     Indication: HEART RATE ABNORMAL
  3. DOFETILIDE. [Suspect]
     Active Substance: DOFETILIDE
     Indication: ATRIAL FIBRILLATION
     Dosage: 250 MG, UNK
     Route: 048

REACTIONS (1)
  - Drug ineffective [Unknown]
